FAERS Safety Report 6508327-4 (Version None)
Quarter: 2009Q4

REPORT INFORMATION
  Report Type: 
  Country: None (occurrence: None)
  Receive Date: 20091221
  Receipt Date: 20081223
  Transmission Date: 20100525
  Serious: No
  Sender: FDA-Public Use
  Company Number: US-ASTRAZENECA-2008UW19802

PATIENT
  Age: 64 Year
  Sex: Female
  Weight: 63.5 kg

DRUGS (5)
  1. CRESTOR [Suspect]
     Indication: BLOOD CHOLESTEROL INCREASED
     Route: 048
     Dates: start: 20071016, end: 20080617
  2. TRICOR [Suspect]
  3. PREDNISONE [Concomitant]
  4. ERYTHROMYCIN [Concomitant]
  5. LEVAQUIN [Concomitant]

REACTIONS (4)
  - BRONCHITIS [None]
  - CHEST PAIN [None]
  - MYALGIA [None]
  - MYOPATHY [None]
